FAERS Safety Report 5452924-4 (Version None)
Quarter: 2007Q3

REPORT INFORMATION
  Report Type: 
  Country: None (occurrence: None)
  Receive Date: 20070914
  Receipt Date: 20070912
  Transmission Date: 20080115
  Serious: Yes (Other)
  Sender: FDA-Public Use
  Company Number: D0054308A

PATIENT
  Age: 55 Year
  Sex: Male
  Weight: 105.4 kg

DRUGS (7)
  1. ELONTRIL [Suspect]
     Indication: DEPRESSION
     Dosage: 150MG PER DAY
     Route: 048
     Dates: start: 20070709
  2. QUILONUM RETARD [Concomitant]
     Dosage: 450MG TWICE PER DAY
     Route: 048
  3. METFORMIN HCL [Concomitant]
     Dosage: 25MG SINGLE DOSE
     Route: 048
  4. ELMENDOS [Concomitant]
     Dosage: 50MG PER DAY
     Route: 048
  5. BISOPROLOL FUMARATE AND HYDROCHLOROTHIAZIDE [Concomitant]
     Dosage: 35MG PER DAY
     Route: 048
  6. ATOSIL [Concomitant]
     Dosage: 75MG PER DAY
     Route: 048
  7. NEXIUM [Concomitant]
     Dosage: 40MG PER DAY
     Route: 048

REACTIONS (5)
  - AKINESIA [None]
  - ASTHENIA [None]
  - CHILLS [None]
  - PARKINSONISM [None]
  - TREMOR [None]
